FAERS Safety Report 10278576 (Version 3)
Quarter: 2016Q4

REPORT INFORMATION
  Report Type: Report from Study
  Country: ES (occurrence: ES)
  Receive Date: 20140704
  Receipt Date: 20161223
  Transmission Date: 20170206
  Serious: Yes (Other)
  Sender: FDA-Public Use
  Company Number: ES-ROCHE-1285006

PATIENT
  Age: 52 Year
  Sex: Female
  Weight: 79.2 kg

DRUGS (13)
  1. VEMURAFENIB [Suspect]
     Active Substance: VEMURAFENIB
     Indication: METASTATIC MALIGNANT MELANOMA
     Route: 048
     Dates: start: 20130530, end: 20130918
  2. CEFDITOREN PIVOXIL. [Concomitant]
     Active Substance: CEFDITOREN PIVOXIL
  3. SEGURIL [Concomitant]
     Active Substance: FUROSEMIDE
     Indication: OEDEMA
     Route: 048
     Dates: start: 20130722
  4. SYMBICORT [Concomitant]
     Active Substance: BUDESONIDE\FORMOTEROL FUMARATE DIHYDRATE
     Indication: ASTHMA
     Route: 065
  5. IBUPROFENO [Concomitant]
     Active Substance: IBUPROFEN
     Indication: RHINORRHOEA
     Route: 048
     Dates: start: 20130918, end: 20130918
  6. PARACETAMOL [Concomitant]
     Active Substance: ACETAMINOPHEN
     Indication: ASTHENIA
     Route: 048
     Dates: start: 20130611
  7. MONTELUKAST SODIUM. [Concomitant]
     Active Substance: MONTELUKAST SODIUM
     Indication: ASTHMA
     Route: 048
  8. LOSEC [Concomitant]
     Active Substance: OMEPRAZOLE
     Indication: RASH
     Route: 061
     Dates: start: 20130627
  9. PARACETAMOL [Concomitant]
     Active Substance: ACETAMINOPHEN
     Indication: ARTHRALGIA
  10. SPECTRACEF (SPAIN) [Concomitant]
     Indication: PYREXIA
     Route: 048
     Dates: start: 20130923, end: 20130927
  11. LORAZEPAM. [Concomitant]
     Active Substance: LORAZEPAM
     Route: 048
  12. MUPIROCIN. [Concomitant]
     Active Substance: MUPIROCIN
     Indication: SKIN INFECTION
     Route: 061
  13. PLACEBO [Suspect]
     Active Substance: UNSPECIFIED INGREDIENT
     Indication: METASTATIC MALIGNANT MELANOMA
     Route: 048
     Dates: start: 20130530, end: 20130911

REACTIONS (4)
  - Benign neoplasm [Recovered/Resolved]
  - Seborrhoeic keratosis [Recovered/Resolved]
  - Benign neoplasm [Recovered/Resolved]
  - Benign neoplasm of skin [Recovered/Resolved]

NARRATIVE: CASE EVENT DATE: 20130627
